FAERS Safety Report 19958430 (Version 1)
Quarter: 2021Q4

REPORT INFORMATION
  Report Type: Spontaneous
  Country: US (occurrence: US)
  Receive Date: 20211015
  Receipt Date: 20211015
  Transmission Date: 20220303
  Serious: No
  Sender: FDA-Public Use
  Company Number: US-BAUSCH-BL-2021-034248

PATIENT
  Age: 67 Year
  Sex: Female

DRUGS (2)
  1. TRULANCE [Suspect]
     Active Substance: PLECANATIDE
     Indication: Constipation
     Dosage: 1 TABLET BY MOUTH 2 DAYS EVERY WEEK, 3 TO 4 YEARS AGO?BLISTER PACKS
     Route: 048
     Dates: end: 202109
  2. TRULANCE [Suspect]
     Active Substance: PLECANATIDE
     Dosage: 3 TIMES A WEEK IN SEPTEMBER 2021?BOTTLED TRULANCE
     Route: 048
     Dates: start: 202109

REACTIONS (4)
  - Diarrhoea [Unknown]
  - Abdominal distension [Unknown]
  - Inappropriate schedule of product administration [Unknown]
  - Product quality issue [Unknown]
